FAERS Safety Report 20618315 (Version 3)
Quarter: 2024Q1

REPORT INFORMATION
  Report Type: Spontaneous
  Country: CO (occurrence: CO)
  Receive Date: 20220321
  Receipt Date: 20240315
  Transmission Date: 20240410
  Serious: Yes (Hospitalization, Other)
  Sender: FDA-Public Use
  Company Number: CO-PFIZER INC-202200383151

PATIENT
  Age: 16 Year
  Sex: Female

DRUGS (8)
  1. GENOTROPIN [Suspect]
     Active Substance: SOMATROPIN
     Dosage: 1.6 MG
     Route: 058
     Dates: start: 20220119, end: 20221019
  2. PREDNISOLONE [Concomitant]
     Active Substance: PREDNISOLONE
  3. ASPIRIN [Concomitant]
     Active Substance: ASPIRIN
  4. ENALAPRIL [Concomitant]
     Active Substance: ENALAPRIL
  5. D3 VITAMIN [Concomitant]
  6. CALCIUM [Concomitant]
     Active Substance: CALCIUM
  7. BOSENTAN [Concomitant]
     Active Substance: BOSENTAN
  8. MYCOPHENOLIC ACID [Concomitant]
     Active Substance: MYCOPHENOLIC ACID

REACTIONS (1)
  - Pulmonary hypertension [Recovering/Resolving]

NARRATIVE: CASE EVENT DATE: 20221001
